FAERS Safety Report 13570493 (Version 1)
Quarter: 2017Q2

REPORT INFORMATION
  Report Type: Spontaneous
  Country: GB (occurrence: GB)
  Receive Date: 20170522
  Receipt Date: 20170522
  Transmission Date: 20170830
  Serious: Yes (Other)
  Sender: FDA-Public Use
  Company Number: PHFR2017GB003434

PATIENT
  Age: 33 Year
  Sex: Male
  Weight: 40 kg

DRUGS (2)
  1. PROPRANOLOL [Suspect]
     Active Substance: PROPRANOLOL HYDROCHLORIDE
     Indication: AGITATION
     Dosage: 80 MG, QD
     Route: 048
     Dates: start: 20170227, end: 20170310
  2. PERICYAZINE [Concomitant]
     Active Substance: PERICIAZINE
     Indication: PRODUCT USED FOR UNKNOWN INDICATION
     Dosage: TWO-THREE TIMES A DAY
     Route: 065

REACTIONS (2)
  - Abnormal behaviour [Unknown]
  - Hyperkalaemia [Recovered/Resolved]
